FAERS Safety Report 7081406-1 (Version None)
Quarter: 2010Q4

REPORT INFORMATION
  Report Type: 
  Country: None (occurrence: None)
  Receive Date: 20101103
  Receipt Date: 20101027
  Transmission Date: 20110411
  Serious: Yes (Hospitalization)
  Sender: FDA-Public Use
  Company Number: JP-ABBOTT-10P-087-0641092-00

PATIENT
  Sex: Male
  Weight: 45 kg

DRUGS (9)
  1. HUMIRA [Suspect]
     Indication: RHEUMATOID ARTHRITIS
     Route: 058
     Dates: start: 20100118, end: 20100413
  2. LEVODOPA/CARBIDOPA HYDRATE [Concomitant]
     Indication: PRODUCT USED FOR UNKNOWN INDICATION
     Route: 048
     Dates: start: 20100404, end: 20100428
  3. LEVOMEPROMAZINE [Concomitant]
     Indication: INSOMNIA
     Dosage: EVENING AND BEDTIME, DAILY DOSE 0.8 GRAM
     Route: 048
     Dates: start: 20100404, end: 20100428
  4. ALPRAZOLAM [Concomitant]
     Indication: INSOMNIA
     Route: 048
     Dates: start: 20100404, end: 20100428
  5. PREDNISOLONE [Concomitant]
     Indication: RHEUMATOID ARTHRITIS
     Route: 048
     Dates: start: 20100204, end: 20100428
  6. MEQUITAZINE [Concomitant]
     Indication: PRURITUS
     Route: 048
     Dates: start: 20100214, end: 20100414
  7. DICLOFENAC SODIUM [Concomitant]
     Indication: RHEUMATOID ARTHRITIS
     Route: 054
     Dates: start: 20100214, end: 20100414
  8. BENZBROMARONE [Concomitant]
     Indication: BLOOD URIC ACID INCREASED
     Dosage: 25 MG DAILY DOSE
     Route: 048
     Dates: start: 20100401, end: 20100428
  9. SENNA LEAF/SENNA POD [Concomitant]
     Indication: CONSTIPATION
     Route: 048
     Dates: start: 20100404, end: 20100428

REACTIONS (7)
  - CACHEXIA [None]
  - DYSPHAGIA [None]
  - DYSPNOEA [None]
  - GENERAL PHYSICAL HEALTH DETERIORATION [None]
  - HYPOPHAGIA [None]
  - INSOMNIA [None]
  - PULMONARY OEDEMA [None]
